FAERS Safety Report 6690499-2 (Version None)
Quarter: 2010Q2

REPORT INFORMATION
  Report Type: 
  Country: None (occurrence: None)
  Receive Date: 20100421
  Receipt Date: 20100412
  Transmission Date: 20101027
  Serious: Yes (Hospitalization, Other)
  Sender: FDA-Public Use
  Company Number: IE-MEDIMMUNE-MEDI-0010118

PATIENT
  Sex: Male

DRUGS (4)
  1. SYNAGIS [Suspect]
     Route: 030
     Dates: start: 20090801, end: 20091210
  2. SYNAGIS [Suspect]
  3. CLOBAZAM [Concomitant]
     Indication: EXAGGERATED STARTLE RESPONSE
     Route: 048
     Dates: start: 20090701
  4. SWINE FLU VACCINATION [Concomitant]

REACTIONS (5)
  - BRONCHIOLITIS [None]
  - DYSPNOEA [None]
  - LOWER RESPIRATORY TRACT INFECTION [None]
  - RALES [None]
  - WHEEZING [None]
